FAERS Safety Report 8089763-4 (Version None)
Quarter: 2012Q1

REPORT INFORMATION
  Report Type: 
  Country: None (occurrence: None)
  Receive Date: 20120128
  Receipt Date: 20110713
  Transmission Date: 20120608
  Serious: No
  Sender: FDA-Public Use
  Company Number: US-ABBOTT-11P-163-0838673-00

PATIENT
  Age: 50 Year
  Sex: Female

DRUGS (14)
  1. ASPIRIN [Concomitant]
     Indication: PRODUCT USED FOR UNKNOWN INDICATION
     Dosage: DAILY
  2. LIPITOR [Concomitant]
     Indication: BLOOD CHOLESTEROL INCREASED
  3. PROPRANOLOL [Concomitant]
     Indication: HYPERTENSION
  4. LASIX [Concomitant]
     Indication: CELLULITIS
  5. METHOTREXATE [Concomitant]
     Indication: PRODUCT USED FOR UNKNOWN INDICATION
     Dosage: EIGHT TABLETS WEEKLY
  6. HUMIRA [Suspect]
     Indication: RHEUMATOID ARTHRITIS
     Dates: start: 20110504
  7. COUMADIN [Concomitant]
     Indication: BLOOD DISORDER
  8. SPIRIVA [Concomitant]
     Indication: DYSPNOEA
     Route: 055
  9. LORATADINE [Concomitant]
     Indication: HYPERSENSITIVITY
  10. OMEPRAZOLE [Concomitant]
     Indication: GASTROOESOPHAGEAL REFLUX DISEASE
  11. FOLIC ACID [Concomitant]
     Indication: RHEUMATOID ARTHRITIS
  12. PREDNISONE TAB [Concomitant]
     Indication: PRODUCT USED FOR UNKNOWN INDICATION
  13. GABAPENTIN [Concomitant]
     Indication: MIGRAINE
  14. NITROGLYCERIN [Concomitant]
     Indication: ANGINA PECTORIS

REACTIONS (1)
  - INJECTION SITE HAEMORRHAGE [None]
